FAERS Safety Report 17566981 (Version 2)
Quarter: 2020Q2

REPORT INFORMATION
  Report Type: Report from Study
  Country: US (occurrence: US)
  Receive Date: 20200320
  Receipt Date: 20200408
  Transmission Date: 20200713
  Serious: Yes (Other)
  Sender: FDA-Public Use
  Company Number: US-PFIZER INC-2020118679

PATIENT

DRUGS (6)
  1. PREDNISONE. [Suspect]
     Active Substance: PREDNISONE
     Indication: CENTRAL NERVOUS SYSTEM LYMPHOMA
     Dosage: 60 MG/M2, CYCLIC, (DAY 1-5)
  2. RITUXIMAB. [Suspect]
     Active Substance: RITUXIMAB
     Indication: CENTRAL NERVOUS SYSTEM LYMPHOMA
     Dosage: 500 MG/M2, CYCLIC, (DAY 0 AND 14)
  3. ETOPOSIDE. [Suspect]
     Active Substance: ETOPOSIDE
     Indication: CENTRAL NERVOUS SYSTEM LYMPHOMA
     Dosage: 100 MG/M2, CYCLIC, (DAY 2)
  4. BICNU [Suspect]
     Active Substance: CARMUSTINE
     Indication: CENTRAL NERVOUS SYSTEM LYMPHOMA
     Dosage: 100 MG/M2, CYCLIC, (DAY 3)
  5. METHOTREXATE SODIUM. [Suspect]
     Active Substance: METHOTREXATE SODIUM
     Indication: CENTRAL NERVOUS SYSTEM LYMPHOMA
     Dosage: 3.5 G/M2; DAY 1 AND 15, CYCLIC
  6. GRANULOCYTE COLONY STIMULATING FACTOR [Concomitant]
     Active Substance: GRANULOCYTE COLONY-STIMULATING FACTOR NOS
     Indication: SUPPORTIVE CARE
     Dosage: UNK

REACTIONS (1)
  - Nephropathy toxic [Unknown]
